FAERS Safety Report 17490277 (Version 1)
Quarter: 2020Q1

REPORT INFORMATION
  Report Type: Spontaneous
  Country: US (occurrence: US)
  Receive Date: 20200303
  Receipt Date: 20200303
  Transmission Date: 20200409
  Serious: No
  Sender: FDA-Public Use
  Company Number: US-AKORN PHARMACEUTICALS-2019AKN00267

PATIENT
  Age: 20 Year
  Sex: Female
  Weight: 65 kg

DRUGS (6)
  1. CHAPSTICK CLASSIC ORIGINAL [Concomitant]
     Active Substance: PETROLATUM
  2. MYORISAN [Suspect]
     Active Substance: ISOTRETINOIN
     Indication: ACNE
     Dosage: 20 MG, 1X/DAY; ^EVERY EVENING^
     Route: 048
     Dates: start: 20190123, end: 20190206
  3. CLARAVIS [Suspect]
     Active Substance: ISOTRETINOIN
     Indication: ACNE
     Dosage: 40 MG, 1X/DAY; ^EVERY MORNING^
     Route: 048
     Dates: start: 20190123, end: 20190206
  4. MONONESSA [Concomitant]
     Active Substance: ETHINYL ESTRADIOL\NORGESTIMATE
  5. UNSPECIFIED SUNSCREEN [Concomitant]
     Active Substance: UNSPECIFIED INGREDIENT
  6. UNSPECIFIED EMOLIENTS [Concomitant]

REACTIONS (9)
  - Visual field defect [Recovering/Resolving]
  - Ocular discomfort [Unknown]
  - Chest pain [Recovered/Resolved]
  - Heart rate increased [Recovered/Resolved]
  - Eye pain [Unknown]
  - Visual acuity reduced [Recovering/Resolving]
  - Photophobia [Unknown]
  - Asthenopia [Unknown]
  - Headache [Unknown]

NARRATIVE: CASE EVENT DATE: 20190204
